FAERS Safety Report 8984925 (Version 2)
Quarter: 2013Q1

REPORT INFORMATION
  Report Type: Spontaneous
  Country: US (occurrence: US)
  Receive Date: 20121226
  Receipt Date: 20130103
  Transmission Date: 20140127
  Serious: No
  Sender: FDA-Public Use
  Company Number: US-BAYER-2012-126737

PATIENT
  Age: 41 Year
  Sex: Male

DRUGS (1)
  1. AVELOX [Suspect]
     Indication: POSTOPERATIVE WOUND INFECTION

REACTIONS (3)
  - Tendonitis [None]
  - Tendon pain [None]
  - Drug interaction [None]
